FAERS Safety Report 6859501-9 (Version None)
Quarter: 2010Q3

REPORT INFORMATION
  Report Type: 
  Country: None (occurrence: None)
  Receive Date: 20100719
  Receipt Date: 20080301
  Transmission Date: 20110219
  Serious: No
  Sender: FDA-Public Use
  Company Number: US-PFIZER INC-2008020346

PATIENT
  Sex: Female

DRUGS (6)
  1. CHANTIX [Suspect]
     Indication: SMOKING CESSATION THERAPY
     Route: 048
     Dates: start: 20080101, end: 20080201
  2. ALL OTHER THERAPEUTIC PRODUCTS [Concomitant]
  3. NEURONTIN [Concomitant]
  4. XANAX [Concomitant]
  5. VENLAFAXINE HYDROCHLORIDE [Concomitant]
  6. PERCOCET [Concomitant]

REACTIONS (1)
  - ABDOMINAL DISTENSION [None]
